FAERS Safety Report 7562755-7 (Version None)
Quarter: 2011Q2

REPORT INFORMATION
  Report Type: 
  Country: None (occurrence: None)
  Receive Date: 20110622
  Receipt Date: 20110620
  Transmission Date: 20111010
  Serious: Yes (Other)
  Sender: FDA-Public Use
  Company Number: JP-PFIZER INC-2011129079

PATIENT
  Age: 43 Year
  Sex: Female

DRUGS (2)
  1. VARENICLINE TARTRATE [Suspect]
     Dosage: 2 MG, DAILY
     Route: 048
  2. VARENICLINE TARTRATE [Suspect]
     Dosage: UNK
     Route: 048

REACTIONS (12)
  - MUSCULAR WEAKNESS [None]
  - DEHYDRATION [None]
  - EYE MOVEMENT DISORDER [None]
  - BLOOD CREATINE PHOSPHOKINASE INCREASED [None]
  - ORTHOSTATIC HYPOTENSION [None]
  - AUTONOMIC NERVOUS SYSTEM IMBALANCE [None]
  - DYSARTHRIA [None]
  - DECREASED APPETITE [None]
  - DIARRHOEA [None]
  - VOMITING [None]
  - GAIT DISTURBANCE [None]
  - ABDOMINAL PAIN [None]
